FAERS Safety Report 5096152-3 (Version None)
Quarter: 2006Q3

REPORT INFORMATION
  Report Type: 
  Country: None (occurrence: None)
  Receive Date: 20060731
  Receipt Date: 20060428
  Transmission Date: 20061208
  Serious: No
  Sender: FDA-Public Use
  Company Number: 2006PV012946

PATIENT
  Age: 53 Year
  Sex: Female
  Weight: 99.7913 kg

DRUGS (5)
  1. BYETTA [Suspect]
     Indication: DIABETES MELLITUS INSULIN-DEPENDENT
     Dosage: 5 MCG;BID;SC
     Route: 058
     Dates: start: 20060311, end: 20060420
  2. METFORMIN HCL [Concomitant]
  3. AVANDIA [Concomitant]
  4. ISOPHANE INSULIN [Concomitant]
  5. SYNTHROID [Concomitant]

REACTIONS (5)
  - ANXIETY [None]
  - FEELING JITTERY [None]
  - HYPOTONIA [None]
  - PANIC ATTACK [None]
  - TREMOR [None]
